FAERS Safety Report 4320130-2 (Version None)
Quarter: 2004Q1

REPORT INFORMATION
  Report Type: 
  Country: None (occurrence: None)
  Receive Date: 20040317
  Receipt Date: 20040303
  Transmission Date: 20041129
  Serious: No
  Sender: FDA-Public Use
  Company Number: 02100-JPN-04-0045

PATIENT
  Sex: 0

DRUGS (2)
  1. CILOSTAZOL [Suspect]
     Indication: CEREBRAL INFARCTION
     Dosage: NI/200 MG; ORAL
     Route: 048
  2. ARTERIAL BYPASS OPERATION BETWEEN RIGHT SUPERFICIAL TEMPORAL ARTERY AN [Concomitant]

REACTIONS (1)
  - SUBDURAL HAEMATOMA [None]
